FAERS Safety Report 8463856-1 (Version None)
Quarter: 2012Q2

REPORT INFORMATION
  Report Type: 
  Country: None (occurrence: None)
  Receive Date: 20120625
  Receipt Date: 20120618
  Transmission Date: 20120825
  Serious: Yes (Hospitalization, Other)
  Sender: FDA-Public Use
  Company Number: US-JNJFOC-20120503756

PATIENT
  Sex: Female
  Weight: 101.61 kg

DRUGS (6)
  1. DILTIAZEM HYDROCHOLORIDE [Concomitant]
     Indication: HYPERTENSION
     Route: 048
     Dates: start: 20120405
  2. LASIX [Concomitant]
     Indication: DIURETIC THERAPY
     Route: 048
     Dates: start: 20120101
  3. XARELTO [Suspect]
     Indication: ATRIAL FIBRILLATION
     Route: 048
     Dates: start: 20120404, end: 20120422
  4. DILTIAZEM HYDROCHOLORIDE [Concomitant]
     Route: 048
  5. POTASSIUM ACETATE [Concomitant]
     Indication: BLOOD POTASSIUM
     Route: 048
     Dates: start: 20100101
  6. XARELTO [Suspect]
     Indication: CEREBROVASCULAR ACCIDENT PROPHYLAXIS
     Route: 048
     Dates: start: 20120404, end: 20120422

REACTIONS (7)
  - BLOOD CHOLESTEROL INCREASED [None]
  - ANXIETY [None]
  - DIZZINESS [None]
  - ASTHENIA [None]
  - EPISTAXIS [None]
  - NERVOUSNESS [None]
  - FATIGUE [None]
